FAERS Safety Report 16914640 (Version 3)
Quarter: 2019Q4

REPORT INFORMATION
  Report Type: Spontaneous
  Country: US (occurrence: US)
  Receive Date: 20191014
  Receipt Date: 20191029
  Transmission Date: 20200122
  Serious: Yes (Hospitalization)
  Sender: FDA-Public Use
  Company Number: US-PFIZER INC-2019440170

PATIENT
  Age: 31 Year
  Sex: Male

DRUGS (1)
  1. FENTANYL CITRATE. [Suspect]
     Active Substance: FENTANYL CITRATE
     Dosage: UNK (INTRANASAL)
     Route: 045

REACTIONS (4)
  - Off label use [Unknown]
  - Overdose [Unknown]
  - Product use issue [Unknown]
  - Pulmonary alveolar haemorrhage [Unknown]
